FAERS Safety Report 4651593-0 (Version None)
Quarter: 2005Q2

REPORT INFORMATION
  Report Type: 
  Country: None (occurrence: None)
  Receive Date: 20050404
  Receipt Date: 20041108
  Transmission Date: 20051028
  Serious: No
  Sender: FDA-Public Use
  Company Number: USA041183610

PATIENT
  Sex: Male

DRUGS (8)
  1. CYMBALTA [Suspect]
     Indication: CHEMOTHERAPY
     Dosage: 60 MG/TWICE DAY
  2. MIRAPEX (MIRAPEX) [Concomitant]
  3. QUININE [Concomitant]
  4. MAGNESIU [Concomitant]
  5. MAGNESIUM OXIDE [Concomitant]
  6. FLEXERIL [Concomitant]
  7. HYDROCODONE W/APAP [Concomitant]
  8. HYOSCYAMINE [Concomitant]

REACTIONS (3)
  - HYPOAESTHESIA [None]
  - MUSCLE SPASMS [None]
  - PRESCRIBED OVERDOSE [None]
